FAERS Safety Report 13930690 (Version 1)
Quarter: 2017Q3

REPORT INFORMATION
  Report Type: Spontaneous
  Country: IL (occurrence: IL)
  Receive Date: 20170901
  Receipt Date: 20170901
  Transmission Date: 20171127
  Serious: Yes (Death, Other)
  Sender: FDA-Public Use
  Company Number: IL-EDENBRIDGE PHARMACEUTICALS, LLC-IL-2017EDE000157

PATIENT
  Age: 77 Year
  Sex: Male

DRUGS (5)
  1. PREDNISOLONE SODIUM PHOSPHATE. [Suspect]
     Active Substance: PREDNISOLONE SODIUM PHOSPHATE
     Indication: DIFFUSE LARGE B-CELL LYMPHOMA STAGE IV
     Dosage: EVERY 21 DAYS, 3 TIMES
  2. CYCLOPHOSPHAMIDE. [Suspect]
     Active Substance: CYCLOPHOSPHAMIDE
     Indication: DIFFUSE LARGE B-CELL LYMPHOMA STAGE IV
     Dosage: EVERY 21 DAYS, 3 TIMES
  3. VINCRISTINE [Suspect]
     Active Substance: VINCRISTINE
     Indication: DIFFUSE LARGE B-CELL LYMPHOMA STAGE IV
     Dosage: EVERY 21 DAYS, 3 TIMES
  4. RITUXIMAB. [Suspect]
     Active Substance: RITUXIMAB
     Indication: DIFFUSE LARGE B-CELL LYMPHOMA STAGE IV
     Dosage: EVERY 21 DAYS, 3 TIMES
  5. DOXORUBICIN [Suspect]
     Active Substance: DOXORUBICIN
     Indication: DIFFUSE LARGE B-CELL LYMPHOMA STAGE IV
     Dosage: EVERY 21 DAYS, 3 TIMES

REACTIONS (3)
  - Interstitial lung disease [Recovering/Resolving]
  - Lung infiltration [Recovering/Resolving]
  - Death [Fatal]
